FAERS Safety Report 8992763 (Version 2)
Quarter: 2013Q1

REPORT INFORMATION
  Report Type: Report from Study
  Country: US (occurrence: US)
  Receive Date: 20130102
  Receipt Date: 20130111
  Transmission Date: 20140127
  Serious: Yes (Hospitalization)
  Sender: FDA-Public Use
  Company Number: US-ROCHE-1175643

PATIENT
  Age: 84 Year
  Sex: Male

DRUGS (1)
  1. ALTEPLASE [Suspect]
     Indication: RETINAL VEIN OCCLUSION
     Dosage: SEVERAL MINUES
     Route: 042

REACTIONS (1)
  - Vitreous haemorrhage [Unknown]
